FAERS Safety Report 23608113 (Version 1)
Quarter: 2024Q1

REPORT INFORMATION
  Report Type: Report from Study
  Country: CN (occurrence: CN)
  Receive Date: 20240307
  Receipt Date: 20240307
  Transmission Date: 20240409
  Serious: Yes (Other)
  Sender: FDA-Public Use
  Company Number: CN-TAKEDA-2023TUS046847

PATIENT
  Age: 22 Year
  Sex: Male
  Weight: 83 kg

DRUGS (31)
  1. BRENTUXIMAB VEDOTIN [Suspect]
     Active Substance: BRENTUXIMAB VEDOTIN
     Indication: Hodgkin^s disease
     Dosage: 50 MILLIGRAM, Q3WEEKS
     Route: 041
     Dates: start: 20230426, end: 20230427
  2. BRENTUXIMAB VEDOTIN [Suspect]
     Active Substance: BRENTUXIMAB VEDOTIN
     Dosage: 100 MILLIGRAM, Q3WEEKS
     Route: 041
     Dates: start: 20230524, end: 20240129
  3. DOXORUBICIN HYDROCHLORIDE [Suspect]
     Active Substance: DOXORUBICIN HYDROCHLORIDE
     Indication: Lymphoma
     Dosage: 20 MILLIGRAM, QD
     Route: 042
     Dates: start: 20230426, end: 20230427
  4. VINDESINE [Concomitant]
     Active Substance: VINDESINE
     Indication: Lymphoma
     Dosage: 4 MILLIGRAM, QD
     Route: 042
     Dates: start: 20230428, end: 20230428
  5. DACARBAZINE [Concomitant]
     Active Substance: DACARBAZINE
     Indication: Lymphoma
     Dosage: 740 MILLIGRAM, QD
     Route: 042
     Dates: start: 20230428, end: 20230428
  6. AMMONIUM GLYCYRRHIZATE\CYSTEINE HYDROCHLORIDE\GLYCINE [Concomitant]
     Active Substance: AMMONIUM GLYCYRRHIZATE\CYSTEINE HYDROCHLORIDE\GLYCINE
     Indication: Hepatic function abnormal
     Dosage: UNK UNK, TID
     Route: 048
     Dates: start: 20230421, end: 20230511
  7. AMMONIUM GLYCYRRHIZATE\CYSTEINE [Concomitant]
     Active Substance: AMMONIUM GLYCYRRHIZATE\CYSTEINE
     Indication: Hepatic function abnormal
     Dosage: 200 MILLILITER, QD
     Route: 042
     Dates: start: 20230421, end: 20230511
  8. ESOMEPRAZOLE [Concomitant]
     Active Substance: ESOMEPRAZOLE
     Indication: Prophylaxis
     Dosage: 20 MILLIGRAM, QD
     Route: 048
     Dates: start: 20230421, end: 20230511
  9. PIPERACILLIN AND TAZOBACTAM [Concomitant]
     Active Substance: PIPERACILLIN SODIUM\TAZOBACTAM SODIUM
     Indication: Lymphoma
     Dosage: 4.5 GRAM, QD
     Route: 042
     Dates: start: 20230421, end: 20230428
  10. CALCIUM GLUCONATE [Concomitant]
     Active Substance: CALCIUM GLUCONATE
     Indication: Hypersensitivity
     Dosage: 10 MILLILITER, QD
     Route: 042
     Dates: start: 20230421, end: 20230508
  11. LINEZOLID [Concomitant]
     Active Substance: LINEZOLID
     Indication: Lymphoma
     Dosage: 0.6 GRAM, Q12H
     Route: 042
     Dates: start: 20230424, end: 20230428
  12. ONDANSETRON HYDROCHLORIDE [Concomitant]
     Active Substance: ONDANSETRON HYDROCHLORIDE
     Indication: Antiemetic supportive care
     Dosage: 8 MILLIGRAM, TID
     Route: 040
     Dates: start: 20230426, end: 20230429
  13. ALLOPURINOL [Concomitant]
     Active Substance: ALLOPURINOL
     Indication: Urine alkalinisation therapy
     Dosage: 0.2 GRAM, TID
     Route: 048
     Dates: start: 20230426, end: 20230503
  14. ALLOPURINOL [Concomitant]
     Active Substance: ALLOPURINOL
     Indication: Prophylaxis against dehydration
  15. IMIPENEM AND CILASTATIN SODIUM [Concomitant]
     Active Substance: CILASTATIN SODIUM\IMIPENEM
     Indication: Lymphoma
     Dosage: 0.5 GRAM, Q6HR
     Route: 042
     Dates: start: 20230428, end: 20230505
  16. DAPTOMYCIN [Concomitant]
     Active Substance: DAPTOMYCIN
     Indication: Lymphoma
     Dosage: 300 MILLIGRAM, QD
     Route: 042
     Dates: start: 20230428, end: 20230511
  17. DEXRAZOXANE [Concomitant]
     Active Substance: DEXRAZOXANE
     Indication: Cardiotoxicity
     Dosage: 500 MILLIGRAM, QD
     Route: 042
     Dates: start: 20230426, end: 20230427
  18. DIPHENHYDRAMINE HYDROCHLORIDE [Concomitant]
     Active Substance: DIPHENHYDRAMINE HYDROCHLORIDE
     Indication: Allergy prophylaxis
     Dosage: 20 MILLIGRAM, QD
     Route: 030
     Dates: start: 20230426, end: 20230426
  19. ETOPOSIDE [Concomitant]
     Active Substance: ETOPOSIDE
     Indication: Lymphoma
     Dosage: 0.1 GRAM, QD
     Route: 042
     Dates: start: 20230428, end: 20230428
  20. METHYLPREDNISOLONE SODIUM SUCCINATE [Concomitant]
     Active Substance: METHYLPREDNISOLONE SODIUM SUCCINATE
     Indication: Inflammation
     Dosage: 40 MILLIGRAM, QD
     Route: 042
     Dates: start: 20230428, end: 20230428
  21. METHYLPREDNISOLONE SODIUM SUCCINATE [Concomitant]
     Active Substance: METHYLPREDNISOLONE SODIUM SUCCINATE
     Dosage: 20 MILLIGRAM, QD
     Route: 042
     Dates: start: 20230504, end: 20230507
  22. POTASSIUM CHLORIDE [Concomitant]
     Active Substance: POTASSIUM CHLORIDE
     Indication: Fluid replacement
     Dosage: 1.5 GRAM, QD
     Route: 042
     Dates: start: 20230421, end: 20230507
  23. SODIUM BICARBONATE [Concomitant]
     Active Substance: SODIUM BICARBONATE
     Indication: Urine alkalinisation therapy
     Dosage: 1 GRAM, TID
     Route: 048
     Dates: start: 20230426, end: 20230503
  24. SODIUM BICARBONATE [Concomitant]
     Active Substance: SODIUM BICARBONATE
     Indication: Prophylaxis against dehydration
  25. ALBUMIN HUMAN [Concomitant]
     Active Substance: ALBUMIN HUMAN
     Indication: Hypoproteinaemia
     Dosage: 10 GRAM, QD
     Route: 042
     Dates: start: 20230423, end: 20230427
  26. ALBUMIN HUMAN [Concomitant]
     Active Substance: ALBUMIN HUMAN
     Dosage: 20 GRAM, QD
     Route: 042
     Dates: start: 20230427, end: 20230502
  27. IMIPENEM AND CILASTATIN [Concomitant]
     Active Substance: CILASTATIN SODIUM\IMIPENEM
     Indication: Lymphoma
     Dosage: 0.5 GRAM, Q6HR
     Route: 042
     Dates: start: 20230428, end: 20230505
  28. PALONOSETRON HYDROCHLORIDE [Concomitant]
     Active Substance: PALONOSETRON HYDROCHLORIDE
     Indication: Antiemetic supportive care
     Dosage: 0.25 GRAM, QD
     Route: 040
     Dates: start: 20230427, end: 20230427
  29. KANG AI [Concomitant]
     Indication: Lymphoma
     Dosage: 40 MILLILITER, QD
     Route: 042
     Dates: start: 20230421, end: 20230505
  30. KANG AI [Concomitant]
     Dosage: 40 MILLILITER, QD
     Route: 042
     Dates: start: 20230508, end: 20230511
  31. DEXTROSE [Concomitant]
     Active Substance: DEXTROSE\DEXTROSE MONOHYDRATE
     Indication: Fluid replacement
     Dosage: 40 MILLILITER, QD
     Route: 042
     Dates: start: 20230421, end: 20230507

REACTIONS (11)
  - Peripheral nerve injury [Not Recovered/Not Resolved]
  - Bacteraemia [Recovered/Resolved]
  - Dysphagia [Recovered/Resolved]
  - Nausea [Recovered/Resolved]
  - Vomiting [Recovered/Resolved]
  - Decreased appetite [Recovered/Resolved]
  - Epistaxis [Recovered/Resolved]
  - Gastrointestinal disorder [Recovered/Resolved]
  - Upper respiratory tract infection [Recovered/Resolved]
  - Peroneal nerve injury [Not Recovered/Not Resolved]
  - Off label use [Recovered/Resolved]

NARRATIVE: CASE EVENT DATE: 20230426
